FAERS Safety Report 5386234-0 (Version None)
Quarter: 2007Q3

REPORT INFORMATION
  Report Type: 
  Country: None (occurrence: None)
  Receive Date: 20070710
  Receipt Date: 20070710
  Transmission Date: 20080115
  Serious: Yes (Other)
  Sender: FDA-Public Use
  Company Number: None

PATIENT
  Age: 45 Year
  Sex: Female
  Weight: 68.0396 kg

DRUGS (2)
  1. LYRICA [Suspect]
     Indication: NEUROPATHY
     Dosage: 1 TABLET TWICE DAILY PO
     Route: 048
     Dates: start: 20060801, end: 20070501
  2. FORTEO [Suspect]
     Indication: OSTEOPOROSIS
     Dosage: 20MCG INJECTION UNDER SKIN DAILY SQ
     Route: 058
     Dates: start: 20070101, end: 20070501

REACTIONS (3)
  - DIPLOPIA [None]
  - IMPAIRED DRIVING ABILITY [None]
  - NAUSEA [None]
